FAERS Safety Report 7027702-5 (Version None)
Quarter: 2010Q4

REPORT INFORMATION
  Report Type: 
  Country: None (occurrence: None)
  Receive Date: 20101004
  Receipt Date: 20100924
  Transmission Date: 20110411
  Serious: Yes (Other)
  Sender: FDA-Public Use
  Company Number: US-AMGEN-QUU434816

PATIENT
  Sex: Male

DRUGS (1)
  1. ENBREL [Suspect]
     Indication: RHEUMATOID ARTHRITIS
     Route: 058
     Dates: start: 20100801, end: 20100918

REACTIONS (8)
  - ASTHENIA [None]
  - BALANCE DISORDER [None]
  - DISORIENTATION [None]
  - FALL [None]
  - FAMILIAL PERIODIC PARALYSIS [None]
  - GRAND MAL CONVULSION [None]
  - MUSCLE SPASTICITY [None]
  - SKIN LACERATION [None]
